FAERS Safety Report 4518665-2 (Version None)
Quarter: 2004Q4

REPORT INFORMATION
  Report Type: 
  Country: None (occurrence: None)
  Receive Date: 20041029
  Receipt Date: 20040916
  Transmission Date: 20050328
  Serious: No
  Sender: FDA-Public Use
  Company Number: 200417084US

PATIENT
  Age: 43 Year
  Sex: Female

DRUGS (5)
  1. KETEK [Suspect]
     Indication: SINUSITIS
     Dosage: 800 MG QD PO
     Route: 048
     Dates: start: 20040801, end: 20040801
  2. NADOLOL (CORGARD) [Concomitant]
  3. DOXEPIN HCL [Concomitant]
  4. LEXAPRO [Concomitant]
  5. RABEPRAZOLE SODIUM (ACIPHEX) [Concomitant]

REACTIONS (1)
  - GLOSSODYNIA [None]
